FAERS Safety Report 20540819 (Version 1)
Quarter: 2022Q1

REPORT INFORMATION
  Report Type: Spontaneous
  Country: JP (occurrence: JP)
  Receive Date: 20220302
  Receipt Date: 20220302
  Transmission Date: 20220423
  Serious: Yes (Other)
  Sender: FDA-Public Use
  Company Number: JP-MTPC-MTPC2021-0027227

PATIENT
  Age: 8 Decade
  Sex: Female

DRUGS (6)
  1. REMICADE [Suspect]
     Active Substance: INFLIXIMAB
     Indication: Product used for unknown indication
     Dosage: UNK
     Route: 042
     Dates: start: 200507
  2. SIMPONI [Suspect]
     Active Substance: GOLIMUMAB
     Indication: Rheumatoid arthritis
     Dosage: 100 MILLIGRAM, QD
     Route: 058
     Dates: start: 201112
  3. SIMPONI [Suspect]
     Active Substance: GOLIMUMAB
  4. METHOTREXATE [Suspect]
     Active Substance: METHOTREXATE
     Dosage: 9 MILLIGRAM, 1/WEEK
     Route: 048
     Dates: start: 201112
  5. TOCILIZUMAB [Concomitant]
     Active Substance: TOCILIZUMAB
     Dosage: UNK
     Route: 065
     Dates: start: 200807
  6. PREDNISOLONE [Concomitant]
     Active Substance: PREDNISOLONE
     Dosage: 9 MILLIGRAM
     Route: 065
     Dates: start: 201112

REACTIONS (2)
  - Surgery [Recovered/Resolved]
  - Limb operation [Recovered/Resolved]

NARRATIVE: CASE EVENT DATE: 20120101
